FAERS Safety Report 5502464-9 (Version None)
Quarter: 2007Q4

REPORT INFORMATION
  Report Type: 
  Country: None (occurrence: None)
  Receive Date: 20071030
  Receipt Date: 20071022
  Transmission Date: 20080405
  Serious: Yes (Other)
  Sender: FDA-Public Use
  Company Number: JP-PFIZER INC-2007084861

PATIENT
  Sex: Female
  Weight: 59 kg

DRUGS (8)
  1. ZOLOFT [Suspect]
     Indication: DEPRESSION
     Route: 048
  2. ALL OTHER THERAPEUTIC PRODUCTS [Concomitant]
  3. ASPIRIN [Concomitant]
     Route: 048
  4. PERDIPINA [Concomitant]
     Indication: HYPERTENSION
     Route: 048
  5. ADECUT [Concomitant]
     Indication: HYPERTENSION
     Route: 048
  6. GABALON [Concomitant]
     Route: 048
  7. SENNOSIDES [Concomitant]
     Indication: CONSTIPATION
     Route: 048
  8. DEPAKENE [Concomitant]
     Indication: CONVULSION
     Route: 048

REACTIONS (2)
  - DEPRESSED LEVEL OF CONSCIOUSNESS [None]
  - HYPONATRAEMIA [None]
